FAERS Safety Report 8480444-1 (Version None)
Quarter: 2012Q3

REPORT INFORMATION
  Report Type: 
  Country: None (occurrence: None)
  Receive Date: 20120702
  Receipt Date: 20120625
  Transmission Date: 20120928
  Serious: Yes (Hospitalization)
  Sender: FDA-Public Use
  Company Number: US-BIOGENIDEC-2012BI020568

PATIENT
  Age: 37 Year
  Sex: Male

DRUGS (2)
  1. TYSABRI [Suspect]
     Indication: MULTIPLE SCLEROSIS
     Route: 042
     Dates: start: 20080423, end: 20110329
  2. TYSABRI [Suspect]
     Route: 042
     Dates: start: 20110621

REACTIONS (2)
  - MULTIPLE SCLEROSIS [None]
  - HEAD INJURY [None]
